FAERS Safety Report 9846548 (Version 2)
Quarter: 2014Q1

REPORT INFORMATION
  Report Type: Spontaneous
  Country: US (occurrence: US)
  Receive Date: 20140127
  Receipt Date: 20140127
  Transmission Date: 20141002
  Serious: No
  Sender: FDA-Public Use
  Company Number: US-009507513-1202USA00627

PATIENT
  Sex: 0

DRUGS (1)
  1. CANCIDAS [Suspect]

REACTIONS (1)
  - Arrhythmia [Unknown]
